FAERS Safety Report 6839526-X (Version None)
Quarter: 2010Q3

REPORT INFORMATION
  Report Type: 
  Country: None (occurrence: None)
  Receive Date: 20100714
  Receipt Date: 20091202
  Transmission Date: 20110219
  Serious: No
  Sender: FDA-Public Use
  Company Number: A0832875A

PATIENT
  Age: 78 Year
  Sex: Female

DRUGS (8)
  1. FLOVENT [Suspect]
     Indication: WHEEZING
     Dosage: 2PUFF TWICE PER DAY
     Route: 055
     Dates: start: 20091101
  2. LIPITOR [Concomitant]
  3. ATENOLOL [Concomitant]
  4. LISINOPRIL [Concomitant]
  5. FLUTICASONE NASAL SPRAY [Concomitant]
  6. DOXEPIN HCL [Concomitant]
  7. MECLIZINE [Concomitant]
  8. CLONAZEPAM [Concomitant]

REACTIONS (3)
  - DYSPEPSIA [None]
  - HEADACHE [None]
  - POLLAKIURIA [None]
